APPROVED DRUG PRODUCT: DARUNAVIR
Active Ingredient: DARUNAVIR
Strength: 600MG
Dosage Form/Route: TABLET;ORAL
Application: A202118 | Product #001
Applicant: TEVA PHARMACEUTICALS USA INC
Approved: Nov 21, 2017 | RLD: No | RS: No | Type: DISCN